FAERS Safety Report 8012130-6 (Version None)
Quarter: 2011Q4

REPORT INFORMATION
  Report Type: 
  Country: None (occurrence: None)
  Receive Date: 20111228
  Receipt Date: 20111221
  Transmission Date: 20120403
  Serious: Yes (Hospitalization, Disabling, Other)
  Sender: FDA-Public Use
  Company Number: FR-JNJFOC-20101207116

PATIENT
  Age: 60 Year
  Sex: Female

DRUGS (3)
  1. ESTRADIOL, NORETHINDRONE ACETATE [Concomitant]
     Route: 065
  2. LEVOFLOXACIN [Suspect]
     Indication: LUNG INFECTION
     Route: 048
     Dates: start: 20081229, end: 20090102
  3. LEVOFLOXACIN [Suspect]
     Indication: ACUTE SINUSITIS
     Route: 048
     Dates: start: 20081229, end: 20090102

REACTIONS (4)
  - TENDON RUPTURE [None]
  - ARTHROPATHY [None]
  - DISABILITY [None]
  - TENDON DISORDER [None]
